FAERS Safety Report 9063254 (Version 1)
Quarter: 2013Q1

REPORT INFORMATION
  Report Type: Report from Study
  Country: US (occurrence: US)
  Receive Date: 20130131
  Receipt Date: 20130131
  Transmission Date: 20140127
  Serious: No
  Sender: FDA-Public Use
  Company Number: US-ABBOTT-12P-163-0991345-00

PATIENT
  Age: 66 Year
  Sex: Female

DRUGS (10)
  1. HUMIRA [Suspect]
     Indication: PSORIASIS
     Dosage: LOADING DOSE
     Dates: start: 20120926, end: 20120926
  2. HUMIRA [Suspect]
     Dates: start: 20121003, end: 20121003
  3. HUMIRA [Suspect]
  4. ZOLOFT [Concomitant]
     Indication: DEPRESSION
     Route: 048
  5. HYDROCODONE [Concomitant]
     Indication: BACK PAIN
     Dosage: TWICE DAILY; SOMETIMES THREE TIMES DAILY
     Route: 048
  6. PIROXICAM [Concomitant]
     Indication: ARTHRITIS
     Route: 048
  7. ATARAX [Concomitant]
     Indication: PRURITUS
     Route: 048
  8. ATARAX [Concomitant]
     Indication: PSORIASIS
  9. UNKNOWN BLOOD PRESSURE MEDICATION [Concomitant]
     Indication: HYPERTENSION
  10. FLUOCINONIDE [Concomitant]
     Indication: PSORIASIS
     Dosage: TWICE DAILY, AS NEEDED

REACTIONS (11)
  - Cough [Not Recovered/Not Resolved]
  - Sinus disorder [Not Recovered/Not Resolved]
  - Dyspnoea [Recovering/Resolving]
  - Headache [Not Recovered/Not Resolved]
  - Psoriasis [Not Recovered/Not Resolved]
  - Erythema [Not Recovered/Not Resolved]
  - Depression [Not Recovered/Not Resolved]
  - Asthenia [Unknown]
  - Musculoskeletal pain [Unknown]
  - Sciatica [Unknown]
  - Pain in extremity [Recovered/Resolved]
